FAERS Safety Report 4691122-9 (Version None)
Quarter: 2005Q2

REPORT INFORMATION
  Report Type: 
  Country: None (occurrence: None)
  Receive Date: 20050610
  Receipt Date: 20050601
  Transmission Date: 20051028
  Serious: Yes (Hospitalization)
  Sender: FDA-Public Use
  Company Number: 2005083074

PATIENT
  Age: 84 Year
  Sex: Female

DRUGS (6)
  1. ATARAX [Suspect]
     Indication: ILL-DEFINED DISORDER
     Dosage: ORAL
     Route: 048
     Dates: end: 20050507
  2. CORDARONE [Suspect]
     Indication: ATRIAL FLUTTER
     Dosage: 200 MG, ORAL
     Route: 048
     Dates: end: 20050507
  3. PREVISCAN (FLUINDIONE) [Suspect]
     Indication: CARDIAC FIBRILLATION
     Dosage: ORAL
     Route: 048
     Dates: end: 20050506
  4. LORAZEPAM [Suspect]
     Indication: ILL-DEFINED DISORDER
     Dosage: ORAL
     Route: 048
     Dates: end: 20050507
  5. SIMVASTATIN [Suspect]
     Indication: ILL-DEFINED DISORDER
     Dosage: ORAL
     Route: 048
     Dates: end: 20050507
  6. LESCOL [Suspect]
     Indication: ILL-DEFINED DISORDER
     Dates: end: 20050507

REACTIONS (6)
  - FALL [None]
  - INTERNATIONAL NORMALISED RATIO DECREASED [None]
  - INTERNATIONAL NORMALISED RATIO INCREASED [None]
  - LOSS OF CONSCIOUSNESS [None]
  - OVERDOSE [None]
  - SUBDURAL HAEMATOMA [None]
